FAERS Safety Report 7406723-4 (Version None)
Quarter: 2011Q2

REPORT INFORMATION
  Report Type: 
  Country: None (occurrence: None)
  Receive Date: 20110411
  Receipt Date: 20110404
  Transmission Date: 20111010
  Serious: Yes (Other)
  Sender: FDA-Public Use
  Company Number: GB-PFIZER INC-2011008556

PATIENT
  Age: 64 Year
  Sex: Male
  Weight: 84 kg

DRUGS (10)
  1. LISINOPRIL [Concomitant]
     Dosage: UNK
  2. DIAZEPAM [Concomitant]
     Dosage: 10 MG, UNK
  3. ZOPICLONE [Concomitant]
     Dosage: 7.5 MG, UNK
  4. LYRICA [Suspect]
     Indication: NEURALGIA
     Dosage: 150 MG, 4X/DAY
     Route: 048
     Dates: start: 20090401
  5. PRINADOL [Concomitant]
     Dosage: UNK
  6. PROPRANOLOL [Concomitant]
     Dosage: 40 MG, UNK
  7. TOLBUTAMIDE [Concomitant]
     Dosage: UNK
  8. TRAZODONE [Concomitant]
     Dosage: UNK
  9. GLUCOPHAGE [Concomitant]
     Dosage: UNK
  10. ATORVASTATIN [Concomitant]
     Dosage: UNK

REACTIONS (1)
  - BLOOD GLUCOSE INCREASED [None]
